FAERS Safety Report 5115308-4 (Version None)
Quarter: 2006Q3

REPORT INFORMATION
  Report Type: 
  Country: None (occurrence: None)
  Receive Date: 20060922
  Receipt Date: 20060906
  Transmission Date: 20061208
  Serious: Yes (Other)
  Sender: FDA-Public Use
  Company Number: 229760

PATIENT
  Age: 30 Year
  Sex: Female
  Weight: 60 kg

DRUGS (3)
  1. HERCEPTIN [Suspect]
     Indication: BREAST CANCER
     Dosage: 360 MG, Q3W, INTRAVENOUS
     Route: 042
     Dates: start: 20060112
  2. ZOLADEX [Concomitant]
  3. TAMOXIFEN CITRATE [Concomitant]

REACTIONS (2)
  - ELECTROCARDIOGRAM REPOLARISATION ABNORMALITY [None]
  - SINUS TACHYCARDIA [None]
